FAERS Safety Report 16177249 (Version 1)
Quarter: 2019Q2

REPORT INFORMATION
  Report Type: Spontaneous
  Country: FR (occurrence: FR)
  Receive Date: 20190410
  Receipt Date: 20190410
  Transmission Date: 20190711
  Serious: Yes (Hospitalization)
  Sender: FDA-Public Use
  Company Number: FR-ACCORD-119720

PATIENT
  Age: 64 Year
  Sex: Male
  Weight: 78 kg

DRUGS (10)
  1. ZELITREX [Concomitant]
     Active Substance: VALACYCLOVIR HYDROCHLORIDE
     Dosage: STRENGTH 500 MG
     Route: 048
     Dates: start: 20181228
  2. SERESTA [Concomitant]
     Active Substance: OXAZEPAM
     Dosage: STRENGTH 10 MG
     Route: 048
     Dates: start: 20181228
  3. PERINDOPRIL/PERINDOPRIL ERBUMINE [Concomitant]
     Route: 048
  4. WELLVONE [Concomitant]
     Active Substance: ATOVAQUONE
     Dosage: STRENGTH 750 MG/5 ML
     Route: 048
     Dates: start: 20181228
  5. RETACRIT [Concomitant]
     Active Substance: EPOETIN ALFA-EPBX
     Route: 058
     Dates: start: 201901
  6. CARBOPLATIN. [Suspect]
     Active Substance: CARBOPLATIN
     Indication: ANGIOIMMUNOBLASTIC T-CELL LYMPHOMA
     Route: 042
     Dates: start: 20190104, end: 20190104
  7. ORACILLINE [Concomitant]
     Active Substance: PENICILLIN V
     Dosage: STRENGTH 1 000 000 IU
     Route: 048
     Dates: start: 20181225
  8. CYTARABINE/CYTARABINE HYDROCHLORIDE/CYTARABINE OCFOSFATE [Suspect]
     Active Substance: CYTARABINE
     Indication: ANGIOIMMUNOBLASTIC T-CELL LYMPHOMA
     Route: 042
     Dates: start: 20190105, end: 20190105
  9. SPECIAFOLDINE [Concomitant]
     Active Substance: FOLIC ACID
     Dosage: STRENGTH 5 MG
     Route: 048
     Dates: start: 20190104
  10. DEROXAT [Concomitant]
     Active Substance: PAROXETINE HYDROCHLORIDE
     Dosage: STRENGTH 20 MG, DIVISIBLE COATED TABLET
     Route: 048
     Dates: start: 20190104

REACTIONS (1)
  - Bone marrow failure [Recovered/Resolved]

NARRATIVE: CASE EVENT DATE: 20190115
